FAERS Safety Report 5379537-7 (Version None)
Quarter: 2007Q3

REPORT INFORMATION
  Report Type: 
  Country: None (occurrence: None)
  Receive Date: 20070703
  Receipt Date: 20070622
  Transmission Date: 20080115
  Serious: Yes (Hospitalization)
  Sender: FDA-Public Use
  Company Number: 07US000895

PATIENT
  Age: 37 Year
  Sex: Female
  Weight: 81.6 kg

DRUGS (9)
  1. LITHOBID [Suspect]
     Indication: BIPOLAR DISORDER
     Dosage: 1200 MG, QD, ORAL
     Route: 048
     Dates: start: 20010101, end: 20060201
  2. LITHIUM CARBONATE [Suspect]
     Indication: BIPOLAR DISORDER
     Dosage: 1200 MG, QD, ORAL
     Route: 048
     Dates: start: 20060201
  3. GEODON [Concomitant]
  4. LAMICTAL [Concomitant]
  5. ARTANE [Concomitant]
  6. KLONOPIN [Concomitant]
  7. ZONEGRAN [Concomitant]
  8. SYNTHROID [Concomitant]
  9. LIPITOR [Concomitant]

REACTIONS (2)
  - DEPRESSION [None]
  - INCONTINENCE [None]
